FAERS Safety Report 8602359-8 (Version None)
Quarter: 2012Q3

REPORT INFORMATION
  Report Type: 
  Country: None (occurrence: None)
  Receive Date: 20120817
  Receipt Date: 20120809
  Transmission Date: 20120928
  Serious: No
  Sender: FDA-Public Use
  Company Number: US-ASTRAZENECA-2012SE32275

PATIENT
  Age: 50 Year
  Sex: Female

DRUGS (2)
  1. ZOMIG [Suspect]
     Route: 048
  2. SUMATRIPTAN [Concomitant]

REACTIONS (2)
  - INTENTIONAL DRUG MISUSE [None]
  - MALAISE [None]
